FAERS Safety Report 10726674 (Version 1)
Quarter: 2015Q1

REPORT INFORMATION
  Report Type: Other
  Country: PT (occurrence: PT)
  Receive Date: 20150121
  Receipt Date: 20150121
  Transmission Date: 20150721
  Serious: Yes (Hospitalization)
  Sender: FDA-Public Use
  Company Number: PT-EMD SERONO-7319422

PATIENT
  Age: 40 Year
  Sex: Female

DRUGS (2)
  1. FOLLITROPIN ALFA [Suspect]
     Active Substance: FOLLITROPIN
     Indication: IN VITRO FERTILISATION
     Dates: start: 2011
  2. HMG /01277604/ [Suspect]
     Active Substance: GONADOTROPHIN, CHORIONIC
     Indication: IN VITRO FERTILISATION
     Dates: start: 201105

REACTIONS (4)
  - Anaemia [Recovered/Resolved]
  - Substance-induced psychotic disorder [Recovered/Resolved]
  - Uterine disorder [Recovered/Resolved]
  - Menorrhagia [Recovered/Resolved]

NARRATIVE: CASE EVENT DATE: 201109
